FAERS Safety Report 8765272 (Version 1)
Quarter: 2012Q4

REPORT INFORMATION
  Report Type: 
  Country: US (occurrence: US)
  Receive Date: 20120831
  Receipt Date: 20120831
  Transmission Date: 20130627
  Serious: Yes (Other)
  Sender: FDA-Public Use
  Company Number: US-ASTRAZENECA-2012SE64804

PATIENT
  Age: 67 Year
  Sex: Female

DRUGS (1)
  1. NEXIUM [Suspect]
     Route: 048

REACTIONS (6)
  - Hepatic cirrhosis [Unknown]
  - Portal hypertension [Unknown]
  - Varices oesophageal [Unknown]
  - Obstruction [Unknown]
  - Gastrooesophageal reflux disease [Unknown]
  - Dermatomyositis [Unknown]
